FAERS Safety Report 11054653 (Version 1)
Quarter: 2015Q2

REPORT INFORMATION
  Report Type: Spontaneous
  Country: None (occurrence: SE)
  Receive Date: 20150422
  Receipt Date: 20150422
  Transmission Date: 20150821
  Serious: Yes (Disabling)
  Sender: FDA-Public Use
  Company Number: SE-TEVA-557236ISR

PATIENT
  Age: 56 Year
  Sex: Female

DRUGS (1)
  1. ALENDRONIC ACID 70 MILLIGRAM TABLETTER PER ORAL [Suspect]
     Active Substance: ALENDRONIC ACID
     Route: 048

REACTIONS (3)
  - Visual impairment [Not Recovered/Not Resolved]
  - Acetabulum fracture [Not Recovered/Not Resolved]
  - Atrial fibrillation [Not Recovered/Not Resolved]
